FAERS Safety Report 6119670-5 (Version None)
Quarter: 2009Q1

REPORT INFORMATION
  Report Type: 
  Country: None (occurrence: None)
  Receive Date: 20090311
  Receipt Date: 20090226
  Transmission Date: 20090719
  Serious: No
  Sender: FDA-Public Use
  Company Number: LITAE022609001

PATIENT
  Sex: Female

DRUGS (1)
  1. TRIMETHOPRIM 100 MG DHP PHARMA POWYS [Suspect]
     Indication: PROPHYLAXIS URINARY TRACT INFECTION
     Dosage: 100 MG QD ORALLY; LESS THAN 6 MONTHS
     Route: 048

REACTIONS (1)
  - RESTLESS LEGS SYNDROME [None]
